FAERS Safety Report 8955813 (Version 2)
Quarter: 2013Q1

REPORT INFORMATION
  Report Type: Spontaneous
  Country: US (occurrence: US)
  Receive Date: 20121210
  Receipt Date: 20130109
  Transmission Date: 20140127
  Serious: No
  Sender: FDA-Public Use
  Company Number: US-009507513-1211USA009813

PATIENT
  Age: 74 Year
  Sex: Male

DRUGS (4)
  1. ZETIA [Suspect]
     Indication: BLOOD CHOLESTEROL
     Dosage: 10 MG, QD
     Dates: end: 20121120
  2. FLEET (MINERAL OIL) [Concomitant]
  3. BENICAR [Concomitant]
  4. TEKTURNA [Concomitant]

REACTIONS (2)
  - Constipation [Unknown]
  - Myalgia [Unknown]
